FAERS Safety Report 25741438 (Version 1)
Quarter: 2025Q3

REPORT INFORMATION
  Report Type: Spontaneous
  Country: GB (occurrence: GB)
  Receive Date: 20250829
  Receipt Date: 20250829
  Transmission Date: 20251021
  Serious: Yes (Other)
  Sender: ELI LILLY AND COMPANY
  Company Number: GB-MHRA-TPP1323626C75915YC1755697886469

PATIENT
  Age: 76 Year
  Sex: Female
  Weight: 75 kg

DRUGS (7)
  1. MOUNJARO [Suspect]
     Active Substance: TIRZEPATIDE
     Indication: Ill-defined disorder
     Dosage: UNK UNK, WEEKLY (1/W)
     Route: 058
     Dates: start: 20250718, end: 20250820
  2. MOUNJARO [Suspect]
     Active Substance: TIRZEPATIDE
     Indication: Ill-defined disorder
     Dosage: 2.5 MG, WEEKLY (1/W)
     Route: 058
     Dates: start: 20250820
  3. ALBUTEROL SULFATE [Concomitant]
     Active Substance: ALBUTEROL SULFATE
     Indication: Ill-defined disorder
     Dosage: UNK UNK, EVERY 4 HRS
     Dates: start: 20230623
  4. CANAGLIFLOZIN [Concomitant]
     Active Substance: CANAGLIFLOZIN
     Indication: Ill-defined disorder
     Dosage: 1 DOSAGE FORM, DAILY
     Dates: start: 20240205
  5. ROSUVASTATIN [Concomitant]
     Active Substance: ROSUVASTATIN
     Indication: Ill-defined disorder
     Dosage: 1 DOSAGE FORM, DAILY
     Dates: start: 20240223
  6. GLUCOPHAGE [Concomitant]
     Active Substance: METFORMIN HYDROCHLORIDE
     Indication: Ill-defined disorder
     Dosage: 2 IN MORNING
     Dates: start: 20240617
  7. LANSOPRAZOLE [Concomitant]
     Active Substance: LANSOPRAZOLE
     Indication: Ill-defined disorder
     Dosage: 1 DOSAGE FORM, DAILY
     Dates: start: 20250616

REACTIONS (4)
  - Paraesthesia oral [Recovered/Resolved]
  - Pharyngeal paraesthesia [Recovered/Resolved]
  - Heart rate increased [Recovered/Resolved]
  - Dysgeusia [Unknown]
